FAERS Safety Report 4821728-5 (Version None)
Quarter: 2005Q4

REPORT INFORMATION
  Report Type: 
  Country: None (occurrence: None)
  Receive Date: 20051107
  Receipt Date: 20050916
  Transmission Date: 20060501
  Serious: Yes (Hospitalization)
  Sender: FDA-Public Use
  Company Number: FRWYE984216SEP05

PATIENT
  Age: 48 Year
  Sex: Female

DRUGS (1)
  1. ENBREL [Suspect]
     Indication: RHEUMATOID ARTHRITIS
     Dosage: UNKNOWN
     Route: 058

REACTIONS (5)
  - CELLULITIS GANGRENOUS [None]
  - INFECTIVE TENOSYNOVITIS [None]
  - LOCALISED INFECTION [None]
  - SEPTIC ARTHRITIS STAPHYLOCOCCAL [None]
  - TENDON RUPTURE [None]
